FAERS Safety Report 19193649 (Version 1)
Quarter: 2021Q2

REPORT INFORMATION
  Report Type: Spontaneous
  Country: US (occurrence: US)
  Receive Date: 20210428
  Receipt Date: 20210428
  Transmission Date: 20210717
  Serious: Yes (Hospitalization)
  Sender: FDA-Public Use
  Company Number: None

PATIENT
  Sex: Male

DRUGS (15)
  1. ASPIRIN. [Concomitant]
     Active Substance: ASPIRIN
  2. COMBIGAN [Concomitant]
     Active Substance: BRIMONIDINE TARTRATE\TIMOLOL MALEATE
  3. PROBIOTIC [Concomitant]
     Active Substance: PROBIOTICS NOS
  4. TASIGNA [Suspect]
     Active Substance: NILOTINIB
     Indication: PULMONARY ARTERIAL HYPERTENSION
     Route: 048
     Dates: start: 20150911
  5. ADVIL [Concomitant]
     Active Substance: IBUPROFEN
  6. LUMIGAN [Concomitant]
     Active Substance: BIMATOPROST
  7. DOCUSATE SOD [Concomitant]
  8. NICARDIPINE [Concomitant]
     Active Substance: NICARDIPINE
  9. ATORVASTATIN [Concomitant]
     Active Substance: ATORVASTATIN
  10. IRON [Concomitant]
     Active Substance: IRON
  11. LUTREIN [Concomitant]
  12. IRBESARTAN. [Concomitant]
     Active Substance: IRBESARTAN
  13. LORATANDINE [Concomitant]
  14. CALCIUM/D [Concomitant]
  15. EYE OMEGA, [Concomitant]

REACTIONS (3)
  - Atrial fibrillation [None]
  - Type 2 diabetes mellitus [None]
  - Cardiac disorder [None]
